FAERS Safety Report 7322849-8 (Version None)
Quarter: 2011Q1

REPORT INFORMATION
  Report Type: 
  Country: None (occurrence: None)
  Receive Date: 20110217
  Receipt Date: 20110204
  Transmission Date: 20110831
  Serious: Yes (Other)
  Sender: FDA-Public Use
  Company Number: 2010-4453

PATIENT
  Sex: Male

DRUGS (2)
  1. DYSPORT [Suspect]
     Indication: SKIN COSMETIC PROCEDURE
     Dosage: 167 UNITS (167 UNITS,SINGLE CYCLE), SUBCUTANEOUS
     Route: 058
  2. LORATADINE [Concomitant]

REACTIONS (2)
  - HYPERSENSITIVITY [None]
  - PRODUCT QUALITY ISSUE [None]
